FAERS Safety Report 19410553 (Version 1)
Quarter: 2021Q2

REPORT INFORMATION
  Report Type: Spontaneous
  Country: JP (occurrence: JP)
  Receive Date: 20210614
  Receipt Date: 20210614
  Transmission Date: 20210717
  Serious: Yes (Other)
  Sender: FDA-Public Use
  Company Number: JP-ROCHE-2846971

PATIENT
  Sex: Female

DRUGS (2)
  1. BONVIVA [Suspect]
     Active Substance: IBANDRONATE SODIUM
     Indication: PRODUCT USED FOR UNKNOWN INDICATION
     Route: 042
     Dates: end: 2020
  2. BONVIVA [Suspect]
     Active Substance: IBANDRONATE SODIUM
     Dosage: RESTARTED IN 2021
     Route: 042

REACTIONS (5)
  - Musculoskeletal chest pain [Unknown]
  - Flank pain [Unknown]
  - Spinal fracture [Unknown]
  - Back pain [Unknown]
  - Lumbar vertebral fracture [Unknown]

NARRATIVE: CASE EVENT DATE: 202001
